FAERS Safety Report 8783476 (Version 1)
Quarter: 2012Q4

REPORT INFORMATION
  Report Type: 
  Country: DK (occurrence: DK)
  Receive Date: 20120913
  Receipt Date: 20120913
  Transmission Date: 20130627
  Serious: Yes (Other)
  Sender: FDA-Public Use
  Company Number: DK-VERTEX PHARMACEUTICAL INC.-2012-020894

PATIENT
  Age: 52 Year
  Sex: Female

DRUGS (3)
  1. INCIVO [Suspect]
     Indication: PRODUCT USED FOR UNKNOWN INDICATION
     Dosage: UNK
  2. PEG-INTERFERON [Concomitant]
     Dosage: UNK
  3. RIBAVIRIN [Concomitant]
     Dosage: UNK

REACTIONS (1)
  - Rash [Unknown]
